FAERS Safety Report 5882149-X (Version None)
Quarter: 2008Q3

REPORT INFORMATION
  Report Type: 
  Country: None (occurrence: None)
  Receive Date: 20080912
  Receipt Date: 20080722
  Transmission Date: 20090109
  Serious: No
  Sender: FDA-Public Use
  Company Number: US-ABBOTT-08P-163-0465887-00

PATIENT
  Sex: Female
  Weight: 63.56 kg

DRUGS (4)
  1. HUMIRA [Suspect]
     Indication: RHEUMATOID ARTHRITIS
     Dates: start: 20080501, end: 20080718
  2. PREDNISONE TAB [Concomitant]
     Indication: RHEUMATOID ARTHRITIS
     Route: 048
     Dates: start: 20080501
  3. TYLOX [Concomitant]
     Indication: PAIN
     Dosage: 325MG EVERY 6 HOURS, 2 TABLETS IN AM
     Route: 048
     Dates: start: 20080701
  4. LEVOTHYROXINE SODIUM [Concomitant]
     Indication: HYPOTHYROIDISM
     Route: 048
     Dates: start: 19800101

REACTIONS (3)
  - ARTHRITIS [None]
  - JOINT SWELLING [None]
  - OSTEOPOROSIS [None]
